FAERS Safety Report 14978536 (Version 2)
Quarter: 2018Q2

REPORT INFORMATION
  Report Type: Report from Study
  Country: AR (occurrence: AR)
  Receive Date: 20180606
  Receipt Date: 20180612
  Transmission Date: 20180711
  Serious: Yes (Death)
  Sender: FDA-Public Use
  Company Number: PHHY2018AR016106

PATIENT
  Age: 83 Year
  Sex: Female

DRUGS (1)
  1. EXFORGE [Suspect]
     Active Substance: AMLODIPINE BESYLATE\VALSARTAN
     Indication: PRODUCT USED FOR UNKNOWN INDICATION
     Dosage: (AMLODIPINE 5, VALSARTAN 80, UNITS NOT REPORTED)
     Route: 065

REACTIONS (2)
  - Cerebrovascular accident [Fatal]
  - Mobility decreased [Unknown]

NARRATIVE: CASE EVENT DATE: 20180515
